FAERS Safety Report 8272006-6 (Version None)
Quarter: 2012Q1

REPORT INFORMATION
  Report Type: 
  Country: None (occurrence: None)
  Receive Date: 20120321
  Receipt Date: 20110315
  Transmission Date: 20120608
  Serious: Yes (Other)
  Sender: FDA-Public Use
  Company Number: 2011SP011825

PATIENT
  Age: 25 Year
  Sex: Female

DRUGS (2)
  1. PEG-INTRON [Suspect]
     Indication: PRODUCT USED FOR UNKNOWN INDICATION
     Dosage: 120 MCG,
     Dates: start: 20101009, end: 20101201
  2. REBETOL [Suspect]
     Indication: HEPATITIS C
     Dosage: 800 MG, QD, PO
     Dates: start: 20101009, end: 20101201

REACTIONS (2)
  - SYNCOPE [None]
  - MATERNAL EXPOSURE BEFORE PREGNANCY [None]
